FAERS Safety Report 8819746 (Version 2)
Quarter: 2014Q3

REPORT INFORMATION
  Report Type: Report from Study
  Country: US (occurrence: US)
  Receive Date: 20121001
  Receipt Date: 20140908
  Transmission Date: 20150326
  Serious: Yes (Other)
  Sender: FDA-Public Use
  Company Number: US-ROCHE-1129417

PATIENT
  Sex: Female

DRUGS (4)
  1. SILVADENE [Concomitant]
     Active Substance: SILVER SULFADIAZINE
  2. HERCEPTIN [Suspect]
     Active Substance: TRASTUZUMAB
     Indication: BREAST CANCER FEMALE
     Route: 042
     Dates: start: 20000830
  3. NAVELBINE [Concomitant]
     Active Substance: VINORELBINE TARTRATE
  4. MAGNESIUM SULPHATE [Concomitant]
     Active Substance: MAGNESIUM SULFATE
     Route: 065

REACTIONS (5)
  - Metastasis [Unknown]
  - Pain in extremity [Unknown]
  - Nausea [Unknown]
  - Arthralgia [Unknown]
  - Wound [Unknown]
